FAERS Safety Report 7802275-5 (Version None)
Quarter: 2011Q4

REPORT INFORMATION
  Report Type: 
  Country: None (occurrence: None)
  Receive Date: 20111007
  Receipt Date: 20110928
  Transmission Date: 20120403
  Serious: Yes (Hospitalization, Disabling)
  Sender: FDA-Public Use
  Company Number: PL-JNJFOC-20110806998

PATIENT
  Sex: Female
  Weight: 64.6 kg

DRUGS (8)
  1. MAJAMIL [Concomitant]
     Indication: RHEUMATOID ARTHRITIS
     Route: 048
     Dates: start: 20100906, end: 20110717
  2. GOLIMUMAB [Suspect]
     Indication: RHEUMATOID ARTHRITIS
     Route: 042
     Dates: start: 20110919
  3. GOLIMUMAB [Suspect]
     Route: 042
     Dates: start: 20101116
  4. PANTOPRAZOLE [Concomitant]
     Indication: PROPHYLAXIS AGAINST GASTROINTESTINAL ULCER
     Route: 048
     Dates: start: 20100924, end: 20110717
  5. ALL OTHER THERAPEUTIC PRODUCTS [Concomitant]
     Indication: OSTEOPOROSIS
     Route: 048
     Dates: start: 20100924
  6. GOLIMUMAB [Suspect]
     Route: 042
     Dates: start: 20110602
  7. ACIDUM FOLICUM [Concomitant]
     Indication: ILL-DEFINED DISORDER
     Route: 048
     Dates: start: 20100906
  8. METHYLPREDNISOLONE [Concomitant]
     Indication: RHEUMATOID ARTHRITIS
     Route: 048
     Dates: start: 20100906

REACTIONS (1)
  - ISCHAEMIC STROKE [None]
